FAERS Safety Report 5115186-3 (Version None)
Quarter: 2006Q3

REPORT INFORMATION
  Report Type: 
  Country: None (occurrence: None)
  Receive Date: 20060925
  Receipt Date: 20060925
  Transmission Date: 20061208
  Serious: Yes (Other)
  Sender: FDA-Public Use
  Company Number: None

PATIENT
  Age: 3 Month
  Sex: Female
  Weight: 5.4432 kg

DRUGS (1)
  1. METOCLOPRAMIDE [Suspect]
     Indication: GASTROOESOPHAGEAL REFLUX DISEASE
     Dosage: 0.50 ML   4 TIMES A DAY   UNK
     Dates: start: 20060920, end: 20060921

REACTIONS (1)
  - OCULOGYRATION [None]
